FAERS Safety Report 5502061-5 (Version None)
Quarter: 2007Q4

REPORT INFORMATION
  Report Type: 
  Country: None (occurrence: None)
  Receive Date: 20071030
  Receipt Date: 20070815
  Transmission Date: 20080405
  Serious: No
  Sender: FDA-Public Use
  Company Number: A0670654A

PATIENT
  Sex: Female

DRUGS (2)
  1. IMITREX [Suspect]
     Indication: MIGRAINE
     Route: 045
  2. UNSPECIFIED MEDICATION [Concomitant]
     Indication: NON-HODGKIN'S LYMPHOMA

REACTIONS (1)
  - EPISTAXIS [None]
